FAERS Safety Report 16329921 (Version 4)
Quarter: 2021Q1

REPORT INFORMATION
  Report Type: Spontaneous
  Country: US (occurrence: US)
  Receive Date: 20190520
  Receipt Date: 20210212
  Transmission Date: 20210419
  Serious: Yes (Other)
  Sender: FDA-Public Use
  Company Number: US-GLAXOSMITHKLINE-US2019GSK087685

PATIENT
  Sex: Female

DRUGS (10)
  1. PREVACID [Suspect]
     Active Substance: LANSOPRAZOLE
     Indication: GASTROOESOPHAGEAL REFLUX DISEASE
     Dosage: 30 MG, QD
     Route: 065
     Dates: start: 1997, end: 2001
  2. PANTOPRAZOLE                       /01263204/ [Suspect]
     Active Substance: PANTOPRAZOLE SODIUM
     Indication: GASTROOESOPHAGEAL REFLUX DISEASE
     Dosage: 40 MG, QD
     Route: 048
     Dates: start: 2011
  3. OMEPRAZOLE                         /00661202/ [Suspect]
     Active Substance: OMEPRAZOLE SODIUM
     Dosage: 20 MG, QD
     Route: 048
  4. PREVACID 24 HR [Suspect]
     Active Substance: LANSOPRAZOLE
     Indication: GASTROOESOPHAGEAL REFLUX DISEASE
     Dosage: 15 MG, BID
     Route: 065
     Dates: start: 2009, end: 2011
  5. PROTONIX [Suspect]
     Active Substance: PANTOPRAZOLE SODIUM
     Indication: GASTROOESOPHAGEAL REFLUX DISEASE
     Dosage: 40 MG, QD
     Route: 065
     Dates: start: 2000, end: 20200923
  6. PROTONIX [Suspect]
     Active Substance: PANTOPRAZOLE SODIUM
     Dosage: 20 MG, BID
     Route: 065
     Dates: start: 20170807, end: 20190719
  7. PANTOPRAZOLE                       /01263204/ [Suspect]
     Active Substance: PANTOPRAZOLE SODIUM
     Dosage: 20 MG, QD
     Route: 048
  8. OMEPRAZOLE                         /00661202/ [Suspect]
     Active Substance: OMEPRAZOLE SODIUM
     Indication: GASTROOESOPHAGEAL REFLUX DISEASE
     Dosage: 40 MG, QD
     Route: 048
     Dates: start: 2002
  9. NEXIUM [Suspect]
     Active Substance: ESOMEPRAZOLE MAGNESIUM
     Indication: GASTROOESOPHAGEAL REFLUX DISEASE
     Dosage: 40 MG, QD
     Route: 065
     Dates: start: 2002, end: 2009
  10. PRILOSEC [Suspect]
     Active Substance: OMEPRAZOLE MAGNESIUM
     Indication: GASTROOESOPHAGEAL REFLUX DISEASE
     Dosage: 40 MG, QD
     Route: 065
     Dates: start: 1989, end: 2010

REACTIONS (13)
  - Hypertensive nephropathy [Unknown]
  - Acute kidney injury [Not Recovered/Not Resolved]
  - Hydronephrosis [Unknown]
  - End stage renal disease [Not Recovered/Not Resolved]
  - Nephrogenic anaemia [Unknown]
  - Haemodialysis [Unknown]
  - Chronic kidney disease [Not Recovered/Not Resolved]
  - Dialysis [Not Recovered/Not Resolved]
  - Device dependence [Unknown]
  - Dysuria [Unknown]
  - Diabetic nephropathy [Unknown]
  - Chronic kidney disease-mineral and bone disorder [Unknown]
  - Proteinuria [Unknown]

NARRATIVE: CASE EVENT DATE: 2001
